FAERS Safety Report 24388299 (Version 1)
Quarter: 2024Q4

REPORT INFORMATION
  Report Type: Spontaneous
  Country: JP (occurrence: JP)
  Receive Date: 20241002
  Receipt Date: 20241002
  Transmission Date: 20250114
  Serious: Yes (Hospitalization)
  Sender: ELI LILLY AND CO
  Company Number: JP-ELI_LILLY_AND_COMPANY-JP202410000035

PATIENT
  Age: 76 Year
  Sex: Female

DRUGS (2)
  1. CYRAMZA [Suspect]
     Active Substance: RAMUCIRUMAB
     Indication: Non-small cell lung cancer
     Dosage: UNK
     Route: 041
     Dates: start: 202409
  2. ERLOTINIB HYDROCHLORIDE [Suspect]
     Active Substance: ERLOTINIB HYDROCHLORIDE
     Indication: Non-small cell lung cancer
     Dosage: 150 MG
     Route: 048
     Dates: start: 202409, end: 202409

REACTIONS (1)
  - Dehydration [Recovered/Resolved]

NARRATIVE: CASE EVENT DATE: 20240924
